FAERS Safety Report 9018819 (Version 1)
Quarter: 2013Q1

REPORT INFORMATION
  Report Type: Spontaneous
  Country: US (occurrence: US)
  Receive Date: 20130118
  Receipt Date: 20130118
  Transmission Date: 20140127
  Serious: No
  Sender: FDA-Public Use
  Company Number: US-ASTRAZENECA-2013SE03606

PATIENT
  Age: 80 Year
  Sex: Female
  Weight: 63.5 kg

DRUGS (10)
  1. SYMBICORT [Suspect]
     Indication: CHRONIC OBSTRUCTIVE PULMONARY DISEASE
     Dosage: 80/4.5 MCG 2 PUFFS BID
     Route: 055
  2. XOPINEX [Concomitant]
  3. RIVASTINGMINE HYDROXYZINE [Concomitant]
  4. LORAZEPAM [Concomitant]
  5. FENTANYL [Concomitant]
  6. GABAPENTIN [Concomitant]
  7. PRO AIR [Concomitant]
  8. FLUTICASONE [Concomitant]
  9. PREMARIN [Concomitant]
  10. ALBUTEROL NEBULIZER [Concomitant]

REACTIONS (3)
  - Dry mouth [Unknown]
  - Pruritus [Unknown]
  - Off label use [Unknown]
